FAERS Safety Report 17315960 (Version 1)
Quarter: 2020Q1

REPORT INFORMATION
  Report Type: Spontaneous
  Country: US (occurrence: US)
  Receive Date: 20200124
  Receipt Date: 20200124
  Transmission Date: 20200409
  Serious: No
  Sender: FDA-Public Use
  Company Number: US-ALK-ABELLO A/S-2019AA004381

PATIENT

DRUGS (1)
  1. TAE BULK 510 [Suspect]
     Active Substance: DERMATOPHAGOIDES FARINAE\DERMATOPHAGOIDES PTERONYSSINUS
     Indication: MITE ALLERGY
     Route: 058

REACTIONS (1)
  - Injection site reaction [Unknown]
